FAERS Safety Report 5746167-4 (Version None)
Quarter: 2008Q2

REPORT INFORMATION
  Report Type: 
  Country: None (occurrence: None)
  Receive Date: 20080520
  Receipt Date: 20080506
  Transmission Date: 20081010
  Serious: Yes (Death, Life-Threatening, Other)
  Sender: FDA-Public Use
  Company Number: 2008-01391

PATIENT
  Age: 74 Year
  Sex: Female

DRUGS (2)
  1. VELCADE [Suspect]
     Indication: MULTIPLE MYELOMA
     Dosage: 2 MG, INTRAVENOUS,  1.5 MG, INTRAVENOUS
     Route: 042
     Dates: start: 20071106
  2. SOLU-MEDROL [Concomitant]

REACTIONS (5)
  - HAEMOLYSIS [None]
  - HAEMOLYTIC ANAEMIA [None]
  - INFECTION [None]
  - MALIGNANT NEOPLASM PROGRESSION [None]
  - MULTIPLE MYELOMA [None]
